FAERS Safety Report 12869784 (Version 1)
Quarter: 2016Q4

REPORT INFORMATION
  Report Type: Spontaneous
  Country: US (occurrence: US)
  Receive Date: 20161020
  Receipt Date: 20161020
  Transmission Date: 20170207
  Serious: Yes (Hospitalization)
  Sender: FDA-Public Use
  Company Number: None

PATIENT
  Age: 68 Year
  Sex: Female
  Weight: 71 kg

DRUGS (1)
  1. ATORVASTATIN [Suspect]
     Active Substance: ATORVASTATIN
     Indication: HYPERLIPIDAEMIA
     Route: 048
     Dates: start: 20160326, end: 20160406

REACTIONS (5)
  - Asthenia [None]
  - Pruritus [None]
  - Serum sickness [None]
  - Rash [None]
  - Pyrexia [None]

NARRATIVE: CASE EVENT DATE: 20160406
